FAERS Safety Report 5568178-4 (Version None)
Quarter: 2007Q4

REPORT INFORMATION
  Report Type: 
  Country: None (occurrence: None)
  Receive Date: 20071218
  Receipt Date: 20071218
  Transmission Date: 20080405
  Serious: No
  Sender: FDA-Public Use
  Company Number: None

PATIENT
  Sex: Male

DRUGS (1)
  1. ADVICOR [Suspect]

REACTIONS (5)
  - FATIGUE [None]
  - HYPOVENTILATION [None]
  - ILL-DEFINED DISORDER [None]
  - MUSCLE ATROPHY [None]
  - WALKING AID USER [None]
